FAERS Safety Report 6415278-2 (Version None)
Quarter: 2009Q4

REPORT INFORMATION
  Report Type: 
  Country: None (occurrence: None)
  Receive Date: 20091026
  Receipt Date: 20091026
  Transmission Date: 20100525
  Serious: Yes (Hospitalization)
  Sender: FDA-Public Use
  Company Number: None

PATIENT
  Age: 58 Year
  Sex: Female
  Weight: 68.2 kg

DRUGS (3)
  1. ADRIAMYCIN PFS [Suspect]
     Indication: BREAST CANCER
     Dosage: 106.8MG EVERY 2 WKS IV
     Route: 042
     Dates: start: 20090814, end: 20090930
  2. CYTOXAN [Suspect]
     Indication: BREAST CANCER
     Dosage: 1068MG EVERY 2 WKS IV
     Route: 042
     Dates: start: 20090814, end: 20090930
  3. TYLENOL [Concomitant]

REACTIONS (8)
  - DIARRHOEA [None]
  - DYSPNOEA EXERTIONAL [None]
  - FATIGUE [None]
  - NEUTROPENIA [None]
  - PAIN [None]
  - RETCHING [None]
  - SEPSIS [None]
  - URINARY TRACT INFECTION [None]
